FAERS Safety Report 25603705 (Version 1)
Quarter: 2025Q3

REPORT INFORMATION
  Report Type: Spontaneous
  Country: US (occurrence: US)
  Receive Date: 20250725
  Receipt Date: 20250725
  Transmission Date: 20251020
  Serious: Yes (Hospitalization, Other)
  Sender: BAXTER
  Company Number: US-BAXTER-2025BAX018629

PATIENT
  Age: 41 Year
  Sex: Female

DRUGS (21)
  1. VANCOMYCIN [Suspect]
     Active Substance: VANCOMYCIN
     Indication: Neutrophil count abnormal
     Route: 042
  2. VANCOMYCIN [Suspect]
     Active Substance: VANCOMYCIN
     Indication: Septic shock
     Route: 065
  3. VANCOMYCIN [Suspect]
     Active Substance: VANCOMYCIN
     Indication: Bacteraemia
  4. VANCOMYCIN [Suspect]
     Active Substance: VANCOMYCIN
     Indication: Septic embolus
  5. CYCLOPHOSPHAMIDE [Suspect]
     Active Substance: CYCLOPHOSPHAMIDE
     Indication: Invasive ductal breast carcinoma
     Route: 042
  6. CYCLOPHOSPHAMIDE [Suspect]
     Active Substance: CYCLOPHOSPHAMIDE
     Indication: Chemotherapy
  7. DOXORUBICIN [Suspect]
     Active Substance: DOXORUBICIN
     Indication: Invasive ductal breast carcinoma
     Route: 042
  8. DOXORUBICIN [Suspect]
     Active Substance: DOXORUBICIN
     Indication: Chemotherapy
  9. CEFEPIME [Suspect]
     Active Substance: CEFEPIME HYDROCHLORIDE
     Indication: Neutrophil count abnormal
     Dosage: 2 G, TID
     Route: 042
  10. CEFEPIME [Suspect]
     Active Substance: CEFEPIME HYDROCHLORIDE
     Indication: Septic shock
  11. CEFEPIME [Suspect]
     Active Substance: CEFEPIME HYDROCHLORIDE
     Indication: Bacteraemia
  12. METRONIDAZOLE [Suspect]
     Active Substance: METRONIDAZOLE
     Indication: Neutrophil count abnormal
     Dosage: 500 MG, TID
     Route: 042
  13. METRONIDAZOLE [Suspect]
     Active Substance: METRONIDAZOLE
     Indication: Septic shock
  14. METRONIDAZOLE [Suspect]
     Active Substance: METRONIDAZOLE
     Indication: Bacteraemia
  15. PEMBROLIZUMAB [Suspect]
     Active Substance: PEMBROLIZUMAB
     Indication: Invasive ductal breast carcinoma
     Route: 042
  16. PEMBROLIZUMAB [Suspect]
     Active Substance: PEMBROLIZUMAB
     Indication: Chemotherapy
  17. ANIDULAFUNGIN [Concomitant]
     Active Substance: ANIDULAFUNGIN
     Indication: Neutrophil count abnormal
     Dosage: 100 MG, QD (FOR 3 DAYS)
  18. ANIDULAFUNGIN [Concomitant]
     Active Substance: ANIDULAFUNGIN
     Indication: Septic shock
  19. ANIDULAFUNGIN [Concomitant]
     Active Substance: ANIDULAFUNGIN
     Indication: Bacteraemia
  20. CEFTAROLINE [Concomitant]
     Active Substance: CEFTAROLINE
     Indication: Staphylococcal bacteraemia
     Route: 065
  21. DAPTOMYCIN [Concomitant]
     Active Substance: DAPTOMYCIN
     Indication: Staphylococcal bacteraemia
     Route: 065

REACTIONS (25)
  - Renal failure [Unknown]
  - Encephalopathy [Unknown]
  - Lactic acidosis [Unknown]
  - Injection site plaque [Unknown]
  - Soft tissue infection [Unknown]
  - Heart valve incompetence [Unknown]
  - Septic embolus [Unknown]
  - Tachycardia [Unknown]
  - Agitation [Unknown]
  - Condition aggravated [Unknown]
  - Asthenia [Unknown]
  - Linear IgA disease [Unknown]
  - Erythema [Unknown]
  - Blister [Unknown]
  - Livedo reticularis [Unknown]
  - Skin exfoliation [Unknown]
  - Nikolsky^s sign positive [Unknown]
  - Scab [Unknown]
  - Oral mucosa erosion [Unknown]
  - Lip blister [Unknown]
  - Ulcer [Unknown]
  - Dermatitis bullous [Unknown]
  - Neutrophilic dermatosis [Unknown]
  - Epidermal necrosis [Unknown]
  - Hypotension [Unknown]
